FAERS Safety Report 9764230 (Version 9)
Quarter: 2015Q2

REPORT INFORMATION
  Report Type: Spontaneous
  Country: US (occurrence: US)
  Receive Date: 20131216
  Receipt Date: 20150602
  Transmission Date: 20150821
  Serious: Yes (Life-Threatening, Other)
  Sender: FDA-Public Use
  Company Number: US-PFIZER INC-2013359358

PATIENT
  Age: 68 Year
  Sex: Female

DRUGS (18)
  1. ALEVE [Concomitant]
     Active Substance: NAPROXEN SODIUM
     Indication: PAIN
     Dosage: 220 MG, AS NEEDED (DAILY PRN)
     Route: 048
     Dates: start: 20130710
  2. TYLENOL [Concomitant]
     Active Substance: ACETAMINOPHEN
     Indication: ARTHRITIS
     Dosage: 2 TABLETS AS NEEDED
     Dates: start: 20130607
  3. PREDNISONE. [Concomitant]
     Active Substance: PREDNISONE
     Dosage: 5 MG, 1X/DAY
     Route: 048
  4. KENALOG [Concomitant]
     Active Substance: TRIAMCINOLONE ACETONIDE
     Dosage: 40 MG, UNK
  5. BUTRANS [Concomitant]
     Active Substance: BUPRENORPHINE
     Dosage: 5 MUG PATCH, Q 7 DAYS
  6. ENBREL [Suspect]
     Active Substance: ETANERCEPT
     Dosage: UNK
  7. XELJANZ [Suspect]
     Active Substance: TOFACITINIB CITRATE
     Indication: RHEUMATOID ARTHRITIS
     Dosage: UNK UNK, 5 BID
     Route: 048
     Dates: start: 201304, end: 201311
  8. DIAZEPAM. [Concomitant]
     Active Substance: DIAZEPAM
     Dosage: 5 MG, (AT BEDTIME AS NECESSARY)
     Route: 048
     Dates: start: 20121203, end: 20131003
  9. ACTONEL [Concomitant]
     Active Substance: RISEDRONATE SODIUM
     Indication: OSTEOPOROSIS
     Dosage: 150 MG, MONTHLY (Q NO)
     Route: 048
     Dates: start: 20110823, end: 20130920
  10. METOPROLOL [Concomitant]
     Active Substance: METOPROLOL
     Indication: BLOOD PRESSURE
     Dosage: 25 MG, DAILY
     Route: 048
  11. MARCAINE [Concomitant]
     Active Substance: BUPIVACAINE HYDROCHLORIDE
     Dosage: (1 CC) 1 ML, UNK
  12. ENBREL [Suspect]
     Active Substance: ETANERCEPT
     Indication: RHEUMATOID ARTHRITIS
     Dosage: UNK
  13. ORTHOVISC [Suspect]
     Active Substance: HYALURONIC ACID
     Dosage: UNK
  14. BIOTIN [Concomitant]
     Active Substance: BIOTIN
     Dosage: 5 MG, UNK
     Route: 048
     Dates: start: 20081110, end: 20130828
  15. HYDROCHLOROTHIAZIDE. [Concomitant]
     Active Substance: HYDROCHLOROTHIAZIDE
     Dosage: 12.5 MG, 1X/DAY
     Route: 048
     Dates: start: 20080509, end: 20131115
  16. METOPROLOL SUCCINATE ER [Concomitant]
     Active Substance: METOPROLOL SUCCINATE
     Dosage: 25 MG, DAILY
     Route: 048
     Dates: end: 20131125
  17. XELJANZ [Suspect]
     Active Substance: TOFACITINIB CITRATE
     Dosage: 5 MG, 2X/DAY
     Route: 048
     Dates: start: 201502
  18. TYLENOL ARTHRITIS PAIN [Concomitant]
     Active Substance: ACETAMINOPHEN
     Dosage: 2 TABLETS, AS NECESSARY
     Dates: start: 20130607

REACTIONS (34)
  - Uterine cancer [Recovering/Resolving]
  - Alopecia [Unknown]
  - Carpal tunnel syndrome [Unknown]
  - Spinal osteoarthritis [Unknown]
  - Lung neoplasm malignant [Unknown]
  - Osteoporosis [Unknown]
  - Rotator cuff syndrome [Unknown]
  - Pain [Unknown]
  - Blood test abnormal [Unknown]
  - Arthralgia [Unknown]
  - Hypertension [Unknown]
  - Joint laxity [Unknown]
  - Acute stress disorder [Unknown]
  - Myofascial pain syndrome [Unknown]
  - Ventricular extrasystoles [Unknown]
  - Anaemia [Unknown]
  - Kyphoscoliosis [Unknown]
  - Trigger finger [Unknown]
  - Bursitis [Unknown]
  - Metastases to lung [Not Recovered/Not Resolved]
  - Back pain [Unknown]
  - Meniscus injury [Unknown]
  - Palpitations [Unknown]
  - Tachycardia [Unknown]
  - Drug effect incomplete [Unknown]
  - Rhinitis allergic [Unknown]
  - Leukocytosis [Unknown]
  - Bundle branch block left [Unknown]
  - Osteoarthritis [Unknown]
  - Pericardial disease [Unknown]
  - Thrombophlebitis superficial [Unknown]
  - Rheumatoid arthritis [Unknown]
  - Disease recurrence [Unknown]
  - Synovial cyst [Unknown]

NARRATIVE: CASE EVENT DATE: 2011
